FAERS Safety Report 9511700 (Version 6)
Quarter: 2019Q2

REPORT INFORMATION
  Report Type: Spontaneous
  Country: US (occurrence: US)
  Receive Date: 20130910
  Receipt Date: 20190607
  Transmission Date: 20190711
  Serious: Yes (Hospitalization, Other)
  Sender: FDA-Public Use
  Company Number: US-009507513-1309USA003666

PATIENT
  Sex: Female
  Weight: 67.2 kg

DRUGS (7)
  1. FOSAMAX [Suspect]
     Active Substance: ALENDRONATE SODIUM
     Indication: OSTEOPENIA
     Dosage: UNK, QD
     Route: 048
     Dates: start: 19970203
  2. FOSAMAX [Suspect]
     Active Substance: ALENDRONATE SODIUM
     Indication: OSTEOPOROSIS
     Dosage: 10 MG, UNK
     Route: 048
     Dates: start: 20000106, end: 20020418
  3. CORTICOSTEROIDS (UNSPECIFIED) [Concomitant]
     Active Substance: UNSPECIFIED INGREDIENT
     Indication: JUVENILE IDIOPATHIC ARTHRITIS
     Dosage: UNK, PRN
     Dates: start: 1966
  4. PREDNISONE. [Concomitant]
     Active Substance: PREDNISONE
     Indication: JUVENILE IDIOPATHIC ARTHRITIS
     Dosage: 10-15MG QD
  5. ALENDRONATE SODIUM. [Suspect]
     Active Substance: ALENDRONATE SODIUM
     Indication: OSTEOPENIA
     Dosage: 70 MG, UNK
     Route: 048
     Dates: start: 20110901, end: 20110913
  6. FOSAMAX [Suspect]
     Active Substance: ALENDRONATE SODIUM
     Dosage: 70 MG, UNK
     Route: 048
     Dates: start: 20020408, end: 20110901
  7. ORUDIS [Concomitant]
     Active Substance: KETOPROFEN
     Dosage: 75 MG, TID
     Dates: start: 19970203

REACTIONS (26)
  - Joint arthroplasty [Unknown]
  - Dental caries [Unknown]
  - Osteoarthritis [Unknown]
  - Injury [Unknown]
  - Femur fracture [Recovered/Resolved]
  - Fall [Unknown]
  - Synovitis [Unknown]
  - Fibula fracture [Unknown]
  - Femur fracture [Recovered/Resolved]
  - Device failure [Unknown]
  - Gastrooesophageal reflux disease [Unknown]
  - Intramedullary rod insertion [Unknown]
  - Knee arthroplasty [Unknown]
  - Low turnover osteopathy [Unknown]
  - Spinal compression fracture [Unknown]
  - Joint destruction [Unknown]
  - Rib fracture [Recovered/Resolved]
  - Elbow operation [Unknown]
  - Mammoplasty [Unknown]
  - Joint ankylosis [Unknown]
  - Neck pain [Unknown]
  - Road traffic accident [Unknown]
  - Drug ineffective [Unknown]
  - Synovectomy [Unknown]
  - Pain in extremity [Unknown]
  - Bursitis [Unknown]

NARRATIVE: CASE EVENT DATE: 19970220
